FAERS Safety Report 8934094 (Version 1)
Quarter: 2012Q4

REPORT INFORMATION
  Report Type: 
  Country: US (occurrence: US)
  Receive Date: 20121129
  Receipt Date: 20121129
  Transmission Date: 20130627
  Serious: No
  Sender: FDA-Public Use
  Company Number: US-GLAXOSMITHKLINE-A0953759A

PATIENT
  Age: 65 Year
  Sex: Male

DRUGS (2)
  1. BUPROPION HYDROCHLORIDE [Suspect]
     Indication: DEPRESSION
     Dosage: 100MG Twice per day
     Route: 048
     Dates: start: 2004, end: 2004
  2. SEROQUEL [Concomitant]

REACTIONS (3)
  - Emotional disorder [Recovered/Resolved]
  - Panic reaction [Unknown]
  - Crying [Unknown]
